FAERS Safety Report 9562561 (Version 2)
Quarter: 2013Q3

REPORT INFORMATION
  Report Type: Spontaneous
  Country: JP (occurrence: JP)
  Receive Date: 20130927
  Receipt Date: 20130927
  Transmission Date: 20140515
  Serious: Yes (Hospitalization)
  Sender: FDA-Public Use
  Company Number: JP-PFIZER INC-2013234384

PATIENT
  Age: 40 Year
  Sex: Female
  Weight: 39 kg

DRUGS (15)
  1. ZOSYN [Suspect]
     Indication: PNEUMONIA
     Dosage: 4.5 G, 3X/DAY
     Route: 041
     Dates: start: 20130725, end: 20130803
  2. WARFARIN POTASSIUM [Interacting]
     Indication: DEEP VEIN THROMBOSIS
     Dosage: 5 MG, UNK
     Route: 048
     Dates: start: 20110810, end: 20130801
  3. TEGRETOL [Concomitant]
     Indication: CEREBRAL PALSY
     Dosage: 810 MG, DAILY
     Route: 048
  4. DEPAKENE [Concomitant]
     Indication: CEREBRAL PALSY
     Dosage: 0.75 G, DAILY
     Route: 048
  5. CALFINA [Concomitant]
     Indication: CEREBRAL PALSY
     Dosage: 0.5 UG, DAILY
     Route: 048
  6. RIKKUNSHINTO [Concomitant]
     Indication: CEREBRAL PALSY
     Dosage: 7.5 G, DAILY
     Route: 048
  7. PRANLUKAST HYDRATE [Concomitant]
     Indication: CEREBRAL PALSY
     Dosage: 210 MG, DAILY
     Route: 048
  8. ERYTHROCIN [Concomitant]
     Indication: CEREBRAL PALSY
     Dosage: 1.5 G, DAILY
     Route: 048
  9. MAGNESIUM OXIDE [Concomitant]
     Dosage: UNK
     Route: 048
  10. PICOSULFATE [Concomitant]
     Indication: CEREBRAL PALSY
     Dosage: 6 MG, DAILY
     Route: 048
  11. PULSMARIN [Concomitant]
     Indication: CEREBRAL PALSY
     Dosage: 45 G, DAILY
     Route: 048
  12. MUCODYNE [Concomitant]
     Dosage: UNK
     Route: 048
  13. HOCHUUEKKITOU [Concomitant]
     Dosage: UNK
     Route: 048
  14. LANSOPRAZOLE [Concomitant]
     Indication: CEREBRAL PALSY
     Dosage: 30 MG, DAILY
     Route: 048
  15. POLAPREZINC [Concomitant]
     Indication: CEREBRAL PALSY
     Dosage: 150 MG, DAILY
     Route: 048

REACTIONS (3)
  - Drug interaction [Unknown]
  - Haemorrhagic diathesis [Recovering/Resolving]
  - International normalised ratio increased [Recovering/Resolving]
